FAERS Safety Report 9316775 (Version 1)
Quarter: 2013Q2

REPORT INFORMATION
  Report Type: Spontaneous
  Country: US (occurrence: None)
  Receive Date: 20130528
  Receipt Date: 20130528
  Transmission Date: 20140414
  Serious: No
  Sender: FDA-Public Use
  Company Number: None

PATIENT
  Age: 24 Year
  Sex: Male
  Weight: 65 kg

DRUGS (2)
  1. OCTAGAM [Suspect]
     Dosage: 2 DOSES
     Route: 041
     Dates: start: 20130426, end: 20130509
  2. OCTAGAM [Suspect]
     Dates: start: 2000

REACTIONS (3)
  - Alopecia [None]
  - Product substitution issue [None]
  - Product quality issue [None]
